FAERS Safety Report 15525019 (Version 4)
Quarter: 2019Q2

REPORT INFORMATION
  Report Type: Spontaneous
  Country: US (occurrence: US)
  Receive Date: 20181019
  Receipt Date: 20190402
  Transmission Date: 20190711
  Serious: Yes (Death, Hospitalization)
  Sender: FDA-Public Use
  Company Number: US-VIFOR (INTERNATIONAL) INC.-VIT-2018-10029

PATIENT
  Age: 68 Year
  Sex: Female
  Weight: 125.76 kg

DRUGS (11)
  1. METOPROLOL SUCCINATE ER [Concomitant]
     Active Substance: METOPROLOL SUCCINATE
  2. AZATHIOPRINE. [Concomitant]
     Active Substance: AZATHIOPRINE
  3. LANTUS [Concomitant]
     Active Substance: INSULIN GLARGINE
  4. VELTASSA [Suspect]
     Active Substance: PATIROMER
     Indication: HYPERKALAEMIA
     Route: 048
     Dates: start: 20180214
  5. LEVOTHYROXINE SODIUM. [Concomitant]
     Active Substance: LEVOTHYROXINE SODIUM
  6. NIFEDIPINE. [Concomitant]
     Active Substance: NIFEDIPINE
  7. FUROSEMIDE. [Concomitant]
     Active Substance: FUROSEMIDE
  8. SODIUM BICARBONATE. [Concomitant]
     Active Substance: SODIUM BICARBONATE
  9. GABAPENTIN. [Concomitant]
     Active Substance: GABAPENTIN
  10. NOVOLOG [Concomitant]
     Active Substance: INSULIN ASPART
  11. ATORVASTATIN CALCIUM. [Concomitant]
     Active Substance: ATORVASTATIN CALCIUM

REACTIONS (2)
  - Pneumonia [Recovered/Resolved]
  - Death [Fatal]

NARRATIVE: CASE EVENT DATE: 20181004
